FAERS Safety Report 11997634 (Version 1)
Quarter: 2016Q1

REPORT INFORMATION
  Report Type: Spontaneous
  Country: US (occurrence: US)
  Receive Date: 20160203
  Receipt Date: 20160203
  Transmission Date: 20160526
  Serious: No
  Sender: FDA-Public Use
  Company Number: US-ANACOR-2015ANA00170

PATIENT
  Age: 79 Year
  Sex: Female
  Weight: 47.62 kg

DRUGS (8)
  1. SYNTHROID [Concomitant]
     Active Substance: LEVOTHYROXINE SODIUM
     Dosage: 100 ?G, 4X/WEEK
  2. SYNTHROID [Concomitant]
     Active Substance: LEVOTHYROXINE SODIUM
     Dosage: 50 ?G, 3X/WEEK
  3. KERYDIN [Suspect]
     Active Substance: TAVABOROLE
     Indication: ONYCHOMYCOSIS
     Dosage: UNK, 1X/DAY
     Route: 061
     Dates: start: 20151021, end: 20151025
  4. MEDROXYPROGESTERONE [Concomitant]
     Active Substance: MEDROXYPROGESTERONE
     Dosage: 1.25 MG, 1X/DAY
  5. MENEST [Concomitant]
     Active Substance: ESTROGENS, ESTERIFIED
     Dosage: 0.3 MG, 1X/DAY
  6. ORGANIC OMEGA 3 SALMON OIL (FRESH WATER OIL) [Concomitant]
     Dosage: 1250 MG, 1X/DAY
  7. CITRACAL [Concomitant]
     Active Substance: CALCIUM CITRATE
     Dosage: 2 TABLETS, 2X/DAY
  8. KYO-DOPHILUS 1.5 BILLION CELLS [Concomitant]
     Dosage: 1 TABLETS, 2X/DAY

REACTIONS (8)
  - Hypersensitivity [Unknown]
  - Peripheral swelling [Recovered/Resolved]
  - Rash [Recovered/Resolved]
  - Burning sensation [Recovered/Resolved]
  - Fatigue [Recovered/Resolved]
  - Onychomadesis [Unknown]
  - Paraesthesia [Recovered/Resolved]
  - Mental impairment [Recovered/Resolved]

NARRATIVE: CASE EVENT DATE: 201510
